FAERS Safety Report 20876731 (Version 1)
Quarter: 2022Q2

REPORT INFORMATION
  Report Type: Spontaneous
  Country: AU (occurrence: AU)
  Receive Date: 20220526
  Receipt Date: 20220526
  Transmission Date: 20220721
  Serious: Yes (Life-Threatening, Hospitalization)
  Sender: FDA-Public Use
  Company Number: AU-MYLANLABS-2022M1038971

PATIENT
  Age: 7 Decade

DRUGS (2)
  1. AMITRIPTYLINE [Suspect]
     Active Substance: AMITRIPTYLINE
     Indication: Antidepressant therapy
     Dosage: 2500 MILLIGRAM
     Route: 048
  2. EPINEPHRINE [Suspect]
     Active Substance: EPINEPHRINE
     Indication: Hypotension
     Dosage: 20 MICROGRAM, QMINUTE (INFUSION)
     Route: 042

REACTIONS (5)
  - Overdose [Unknown]
  - Hypotension [Unknown]
  - Loss of consciousness [Unknown]
  - Drug ineffective [Unknown]
  - Electrocardiogram QRS complex prolonged [Unknown]
